FAERS Safety Report 25785987 (Version 1)
Quarter: 2025Q3

REPORT INFORMATION
  Report Type: Spontaneous
  Country: US (occurrence: US)
  Receive Date: 20250910
  Receipt Date: 20250910
  Transmission Date: 20251020
  Serious: Yes (Hospitalization)
  Sender: MALLINCKRODT
  Company Number: US-MALLINCKRODT-MNK202505472

PATIENT

DRUGS (1)
  1. TERLIPRESSIN [Suspect]
     Active Substance: TERLIPRESSIN
     Indication: Product used for unknown indication

REACTIONS (2)
  - Neutropenia [Unknown]
  - Pancytopenia [Unknown]
